FAERS Safety Report 6933401-8 (Version None)
Quarter: 2010Q3

REPORT INFORMATION
  Report Type: 
  Country: None (occurrence: None)
  Receive Date: 20100813
  Receipt Date: 20100526
  Transmission Date: 20110219
  Serious: No
  Sender: FDA-Public Use
  Company Number: 1000014003

PATIENT
  Age: 52 Year
  Sex: Female

DRUGS (8)
  1. SAVELLA [Suspect]
     Indication: NEURALGIA
     Dosage: 12.5 MG (12.5 MG, 1 IN 1 D), ORAL
     Route: 048
     Dates: start: 20100511, end: 20100511
  2. SAVELLA [Suspect]
     Indication: NEURALGIA
     Dosage: 25 MG (12.5 MG, 2 IN 1 D), ORAL
     Route: 048
     Dates: start: 20100512, end: 20100516
  3. SAVELLA [Suspect]
     Indication: NEURALGIA
     Dosage: 6.25 MG (6.25 MG, 1 IN 1 D), ORAL
     Route: 048
     Dates: start: 20100520, end: 20100520
  4. LEXAPRO [Concomitant]
  5. LYRICA [Concomitant]
  6. ESTRADIOL [Concomitant]
  7. PROMETRIUM [Concomitant]
  8. ZANAFLEX [Concomitant]

REACTIONS (7)
  - ABDOMINAL PAIN [None]
  - HYPERHIDROSIS [None]
  - NAUSEA [None]
  - PALPITATIONS [None]
  - TINNITUS [None]
  - TREMOR [None]
  - VISION BLURRED [None]
